FAERS Safety Report 7888768-3 (Version None)
Quarter: 2011Q4

REPORT INFORMATION
  Report Type: 
  Country: None (occurrence: None)
  Receive Date: 20111101
  Receipt Date: 20111020
  Transmission Date: 20120403
  Serious: Yes (Other)
  Sender: FDA-Public Use
  Company Number: 2008-185693-NL

PATIENT
  Age: 50 Year
  Sex: Female
  Weight: 58 kg

DRUGS (2)
  1. IMPLANON [Suspect]
     Indication: CONTRACEPTION
     Dosage: 1 DF;     1 DF
     Dates: start: 20050712
  2. IMPLANON [Suspect]
     Indication: CONTRACEPTION
     Dosage: 1 DF;     1 DF
     Dates: start: 20020711, end: 20050712

REACTIONS (3)
  - BREAST CANCER [None]
  - PROCEDURAL COMPLICATION [None]
  - DEVICE DISLOCATION [None]
